FAERS Safety Report 20126267 (Version 1)
Quarter: 2021Q4

REPORT INFORMATION
  Report Type: Spontaneous
  Country: US (occurrence: US)
  Receive Date: 20211129
  Receipt Date: 20211129
  Transmission Date: 20220303
  Serious: No
  Sender: FDA-Public Use
  Company Number: US-AMGEN-USASP2021178047

PATIENT
  Age: 16 Year
  Sex: Female

DRUGS (7)
  1. RITUXIMAB [Suspect]
     Active Substance: RITUXIMAB
     Indication: Glomerulonephritis membranous
     Dosage: UNK UNK, Q4WK
     Route: 065
  2. IBRUTINIB [Concomitant]
     Active Substance: IBRUTINIB
     Indication: Chronic graft versus host disease oral
  3. TACROLIMUS [Concomitant]
     Active Substance: TACROLIMUS
     Indication: Glomerulonephritis membranous
     Dosage: 3-8 NG/ML
  4. PREDNISONE [Concomitant]
     Active Substance: PREDNISONE
     Indication: Glomerulonephritis membranous
  5. LOSARTAN [Concomitant]
     Active Substance: LOSARTAN
     Indication: Glomerulonephritis membranous
  6. ATORVASTATIN [Concomitant]
     Active Substance: ATORVASTATIN
     Indication: Glomerulonephritis membranous
  7. CYCLOPHOSPHAMIDE [Concomitant]
     Active Substance: CYCLOPHOSPHAMIDE
     Indication: Glomerulonephritis membranous

REACTIONS (2)
  - Drug ineffective for unapproved indication [Unknown]
  - Off label use [Unknown]
